FAERS Safety Report 8899546 (Version 1)
Quarter: 2012Q4

REPORT INFORMATION
  Report Type: 
  Country: SE (occurrence: SE)
  Receive Date: 20121109
  Receipt Date: 20121109
  Transmission Date: 20130627
  Serious: Yes (Hospitalization)
  Sender: FDA-Public Use
  Company Number: SE-PFIZER INC-2012273960

PATIENT
  Age: 55 Year
  Sex: Female
  Weight: 67.4 kg

DRUGS (10)
  1. GENOTROPIN [Suspect]
     Indication: GROWTH HORMONE DEFICIENCY
     Dosage: 0.2 mg, 1x/day, 7 injections/week
     Route: 058
     Dates: start: 20080811
  2. CALCICHEW-D3 [Concomitant]
     Indication: OSTEOPOROSIS
     Dosage: UNK
     Dates: start: 19941220
  3. DEHYDROEPIANDROSTERONE [Concomitant]
     Indication: FOLLICLE-STIMULATING HORMONE DEFICIENCY
     Dosage: UNK
     Dates: start: 20011214
  4. DEHYDROEPIANDROSTERONE [Concomitant]
     Indication: LUTEINIZING HORMONE DEFICIENCY
  5. DEHYDROEPIANDROSTERONE [Concomitant]
     Indication: HYPOGONADISM FEMALE
  6. GLUCOSAMINE [Concomitant]
     Indication: ARTHROSIS
     Dosage: UNK
     Dates: start: 20050530
  7. CIPRAMIL [Concomitant]
     Indication: DEPRESSION
     Dosage: UNK
     Dates: start: 20061214
  8. EMGESAN [Concomitant]
     Dosage: UNK
     Dates: start: 20070612
  9. PRASTERONE [Concomitant]
     Indication: ACTH DECREASED
     Dosage: UNK
     Dates: start: 20071010
  10. THERALEN [Concomitant]
     Indication: ANXIETY
     Dosage: UNK
     Dates: start: 20071217

REACTIONS (1)
  - Back disorder [Unknown]
